FAERS Safety Report 6520299 (Version 17)
Quarter: 2013Q4

REPORT INFORMATION
  Report Type: Spontaneous
  Country: US (occurrence: US)
  Receive Date: 20080107
  Receipt Date: 20131210
  Transmission Date: 20140711
  Serious: Yes (Death, Hospitalization, Other)
  Sender: FDA-Public Use
  Company Number: PHEH2008US00458

PATIENT
  Age: 51 Year
  Sex: Female
  Weight: 73.47 kg

DRUGS (27)
  1. ZOMETA [Suspect]
     Dosage: 4 MG, QMO
     Route: 042
  2. AREDIA [Suspect]
     Indication: METASTASES TO BONE
     Dates: end: 2002
  3. AREDIA [Suspect]
     Dates: start: 20020723
  4. CHEMOTHERAPEUTICS NOS [Concomitant]
  5. TAXOL [Concomitant]
     Dates: start: 20051129
  6. PROCRIT                            /00909301/ [Concomitant]
     Dosage: 1 ML, QW
  7. RADIATION THERAPY [Concomitant]
  8. PLATELET [Concomitant]
  9. PACLITAXEL [Concomitant]
  10. DEXAMETHASONE [Concomitant]
  11. GRANISETRON [Concomitant]
  12. RANITIDINE [Concomitant]
  13. DIPHENHYDRAMINE [Concomitant]
  14. ERYTHROPOIETIN [Concomitant]
  15. CELEXA [Concomitant]
     Dosage: 20 MG, QD
  16. TAMOXIFEN [Concomitant]
  17. BLOOD TRANSFUSION, AUXILIARY PRODUCTS [Concomitant]
  18. ARIMIDEX ^ASTRAZENECA^ [Concomitant]
  19. HYDROCHLOROTHIAZIDE [Concomitant]
  20. ASPIRIN ^BAYER^ [Concomitant]
  21. MULTIVITAMINS [Concomitant]
  22. ALLEGRA [Concomitant]
  23. ANTIHISTAMINES [Concomitant]
  24. ELAVIL [Concomitant]
  25. CLARITIN [Concomitant]
     Route: 048
  26. ZYRTEC [Concomitant]
     Dosage: 10 MG, QD
     Route: 048
  27. ASA [Concomitant]

REACTIONS (78)
  - Death [Fatal]
  - Osteonecrosis of jaw [Unknown]
  - Injury [Unknown]
  - Pain [Unknown]
  - Anxiety [Unknown]
  - Anhedonia [Unknown]
  - Jaw disorder [Unknown]
  - Renal failure acute [Unknown]
  - Malignant neoplasm progression [Unknown]
  - Metastases to bone marrow [Unknown]
  - Metastases to spine [Unknown]
  - Metastases to meninges [Unknown]
  - Temporomandibular joint syndrome [Unknown]
  - Trismus [Unknown]
  - Leukopenia [Unknown]
  - Back pain [Unknown]
  - Pancytopenia [Unknown]
  - Hydronephrosis [Unknown]
  - Ear pain [Unknown]
  - Hypoacusis [Unknown]
  - Asthenia [Unknown]
  - Skin mass [Unknown]
  - Gait disturbance [Unknown]
  - Swelling [Unknown]
  - Bone disorder [Unknown]
  - Neutropenia [Unknown]
  - Vertigo [Unknown]
  - Dyspnoea exertional [Unknown]
  - Hot flush [Unknown]
  - Anaemia [Unknown]
  - Thrombocytopenia [Unknown]
  - Lymphadenopathy [Unknown]
  - Depression [Unknown]
  - Pelvic mass [Unknown]
  - Pleural effusion [Unknown]
  - Pelvic pain [Unknown]
  - Nausea [Unknown]
  - Hepatomegaly [Unknown]
  - Sinusitis [Unknown]
  - Hypoaesthesia [Unknown]
  - Paraesthesia [Unknown]
  - Weight decreased [Unknown]
  - Mass [Unknown]
  - Fall [Unknown]
  - Decreased appetite [Unknown]
  - Constipation [Unknown]
  - Menopause [Unknown]
  - Tremor [Unknown]
  - Cystoscopy [Unknown]
  - Urogram [Unknown]
  - Pyrexia [Unknown]
  - Transfusion reaction [Unknown]
  - Chills [Unknown]
  - Chronic obstructive pulmonary disease [Unknown]
  - Bronchitis [Unknown]
  - Cough [Unknown]
  - Nasal congestion [Unknown]
  - Injection site haematoma [Unknown]
  - Vomiting [Unknown]
  - Hypertension [Unknown]
  - Eczema [Unknown]
  - Dizziness [Unknown]
  - Tinnitus [Unknown]
  - Musculoskeletal pain [Unknown]
  - Gingival bleeding [Unknown]
  - Sensitivity of teeth [Unknown]
  - Toothache [Unknown]
  - Seasonal allergy [Unknown]
  - Gingival swelling [Unknown]
  - Gingivitis [Unknown]
  - Gingival pain [Unknown]
  - Gingival disorder [Unknown]
  - Gingival erythema [Unknown]
  - Disease progression [Unknown]
  - Oropharyngeal pain [Unknown]
  - Chondromalacia [Unknown]
  - Arthralgia [Unknown]
  - Metastases to bone [Unknown]
